FAERS Safety Report 5282405-2 (Version None)
Quarter: 2007Q1

REPORT INFORMATION
  Report Type: 
  Country: None (occurrence: None)
  Receive Date: 20070326
  Receipt Date: 20070309
  Transmission Date: 20070707
  Serious: Yes (Life-Threatening, Other)
  Sender: FDA-Public Use
  Company Number: 2005JP001689

PATIENT
  Age: 65 Year
  Sex: Female
  Weight: 48 kg

DRUGS (17)
  1. TACROLIMUS [Suspect]
     Indication: RHEUMATOID ARTHRITIS
     Dosage: 1.50 MG, D, ORAL
     Route: 048
     Dates: start: 20050625, end: 20050805
  2. RHEUMATREX [Suspect]
     Indication: RHEUMATOID ARTHRITIS
     Dosage: SEE IMAGE
     Route: 048
     Dates: end: 20050817
  3. RHEUMATREX [Suspect]
     Indication: RHEUMATOID ARTHRITIS
     Dosage: SEE IMAGE
     Route: 048
     Dates: start: 20050818, end: 20050901
  4. PREDNISOLONE [Suspect]
     Indication: RHEUMATOID ARTHRITIS
     Dosage: SEE IMAGE
     Dates: start: 20050902
  5. BAKTAR(SULFAMETHOXAZOLE, TRIMETHOPRIM) TABLET [Suspect]
     Indication: PROPHYLAXIS
     Dosage: BID, ORAL
     Route: 048
  6. MINOCYCLINE HYDROCHLORIDE [Suspect]
     Indication: ORAL INFECTION
     Dosage: 100.00 MG, D, IV NOS
     Route: 042
     Dates: start: 20050824, end: 20050901
  7. MINOCYCLINE HYDROCHLORIDE [Suspect]
     Indication: ORAL INFECTION
     Dosage: 100.00 MG, D, IV NOS
     Route: 042
     Dates: start: 20050909
  8. SPIRONOLACTONE TABLET [Concomitant]
  9. ISCOTIN (ISONIAZID) TABLET [Concomitant]
  10. OMEPRAZON TABLET [Concomitant]
  11. ACTONEL [Concomitant]
  12. FUROSEMIDE [Concomitant]
  13. GASMOTIN (MOSAPRIDE CITRATE) TABLET [Concomitant]
  14. WARFARIN (WARFARIN) TABLET [Concomitant]
  15. KAMAG G (MAGNESIUM OXIDE) [Concomitant]
  16. MOHRUS (KETOPROFEN) TAPE [Concomitant]
  17. VOLTAREN CIBA-GEIGY SUPPOSITORY [Concomitant]

REACTIONS (6)
  - ANOREXIA [None]
  - DISSEMINATED INTRAVASCULAR COAGULATION [None]
  - ORAL INFECTION [None]
  - PANCYTOPENIA [None]
  - STAPHYLOCOCCAL INFECTION [None]
  - STOMATITIS [None]
